FAERS Safety Report 20540178 (Version 1)
Quarter: 2022Q1

REPORT INFORMATION
  Report Type: Spontaneous
  Country: JP (occurrence: JP)
  Receive Date: 20220302
  Receipt Date: 20220302
  Transmission Date: 20220424
  Serious: Yes (Other)
  Sender: FDA-Public Use
  Company Number: JP-PFIZER INC-202200309085

PATIENT
  Age: 5 Decade
  Sex: Male

DRUGS (2)
  1. GEMCITABINE HYDROCHLORIDE [Suspect]
     Active Substance: GEMCITABINE HYDROCHLORIDE
     Indication: Chemotherapy
     Dosage: UNK
  2. PACLITAXEL [Suspect]
     Active Substance: PACLITAXEL
     Indication: Chemotherapy
     Dosage: UNK

REACTIONS (9)
  - Neutrophil count decreased [Recovered/Resolved]
  - Neuropathy peripheral [Unknown]
  - White blood cell count decreased [Recovered/Resolved]
  - Rash [Unknown]
  - Pruritus [Unknown]
  - Myalgia [Unknown]
  - Dysgeusia [Unknown]
  - Fatigue [Unknown]
  - Malaise [Unknown]
